FAERS Safety Report 4336488-4 (Version None)
Quarter: 2004Q2

REPORT INFORMATION
  Report Type: 
  Country: None (occurrence: None)
  Receive Date: 20040412
  Receipt Date: 20040319
  Transmission Date: 20050107
  Serious: Yes (Death)
  Sender: FDA-Public Use
  Company Number: US-ROCHE-362123

PATIENT
  Age: 80 Year
  Sex: Female
  Weight: 50.9 kg

DRUGS (16)
  1. CAPECITABINE [Suspect]
     Indication: COLORECTAL CANCER METASTATIC
     Dosage: FOR DAYS 1-15- EVERY 21 DAYS
     Route: 048
     Dates: start: 20040220
  2. BEVACIZUMAB [Suspect]
     Indication: COLORECTAL CANCER METASTATIC
     Route: 042
     Dates: start: 20040220
  3. OXALIPLATIN [Suspect]
     Indication: COLORECTAL CANCER METASTATIC
     Route: 042
     Dates: start: 20040220
  4. ATENOLOL [Concomitant]
     Indication: HYPERTENSION
  5. ADALAT [Concomitant]
     Indication: HYPERTENSION
  6. ACCUPRIL [Concomitant]
     Indication: HYPERTENSION
  7. COLESTID [Concomitant]
  8. PEPCID [Concomitant]
  9. CALCIUM [Concomitant]
  10. CENTRUM [Concomitant]
  11. ASPIRIN [Concomitant]
  12. FOSAMAX [Concomitant]
     Indication: OSTEOPOROSIS
  13. LOPERAMIDE HCL [Concomitant]
     Dates: end: 20040308
  14. PROCHLORPERAZINE [Concomitant]
     Dates: end: 20040308
  15. FLUCONAZOLE [Concomitant]
     Dates: start: 20040226, end: 20040308
  16. POTASSIUM [Concomitant]

REACTIONS (11)
  - ALANINE AMINOTRANSFERASE INCREASED [None]
  - ARRHYTHMIA [None]
  - BLOOD CHLORIDE DECREASED [None]
  - BLOOD GLUCOSE INCREASED [None]
  - BLOOD POTASSIUM DECREASED [None]
  - BLOOD SODIUM DECREASED [None]
  - CANDIDIASIS [None]
  - CARDIAC DISORDER [None]
  - DIARRHOEA [None]
  - NAUSEA [None]
  - PROTEIN TOTAL DECREASED [None]
